FAERS Safety Report 7896463-X (Version None)
Quarter: 2011Q4

REPORT INFORMATION
  Report Type: 
  Country: None (occurrence: None)
  Receive Date: 20111102
  Receipt Date: 20111020
  Transmission Date: 20120403
  Serious: Yes (Hospitalization)
  Sender: FDA-Public Use
  Company Number: 2011HGS-002670

PATIENT
  Age: 43 Year
  Sex: Female
  Weight: 104.3273 kg

DRUGS (14)
  1. ZOLOFT [Concomitant]
  2. ESTRADIOL [Concomitant]
  3. TRAZODONE HCL [Concomitant]
  4. BENLYSTA [Suspect]
     Indication: SYSTEMIC LUPUS ERYTHEMATOSUS
     Dosage: 10 MG/KG, INTRAVENOUS DRIP
     Route: 041
     Dates: start: 20111004, end: 20111004
  5. PRILOSEC [Concomitant]
  6. CALCIUM PLUS D (CALCIUM WITH VITAMIN D) (ERGOCALCIFEROL, CALCIUM PHOSP [Concomitant]
  7. ZINC [Concomitant]
  8. SEROQUEL [Concomitant]
  9. KLONOPIN [Concomitant]
  10. HYDROCODONE BITARTRATE [Concomitant]
  11. PREDNISONE TAB [Concomitant]
  12. COREG [Concomitant]
  13. CELLCEPT [Concomitant]
  14. LISINOPRIL [Concomitant]

REACTIONS (11)
  - OEDEMA MOUTH [None]
  - INFLUENZA LIKE ILLNESS [None]
  - PHARYNGITIS STREPTOCOCCAL [None]
  - OROPHARYNGEAL BLISTERING [None]
  - PNEUMONIA [None]
  - COUGH [None]
  - FATIGUE [None]
  - SWOLLEN TONGUE [None]
  - POSTURE ABNORMAL [None]
  - TONGUE BLISTERING [None]
  - PYREXIA [None]
